FAERS Safety Report 5703700-6 (Version None)
Quarter: 2008Q2

REPORT INFORMATION
  Report Type: 
  Country: None (occurrence: None)
  Receive Date: 20080413
  Receipt Date: 20080404
  Transmission Date: 20081010
  Serious: Yes (Hospitalization)
  Sender: FDA-Public Use
  Company Number: PHRM2008FR01205

PATIENT
  Age: 10 Month
  Sex: Male
  Weight: 7.64 kg

DRUGS (2)
  1. CYCLOSPORINE [Suspect]
     Indication: LIVER TRANSPLANT
     Dosage: 0.8 TO 1.7 MG, QD
     Dates: start: 20080124, end: 20080203
  2. NEORAL [Suspect]
     Indication: LIVER TRANSPLANT
     Dosage: 80 TO 190 MG, QD
     Route: 048
     Dates: start: 20080204, end: 20080212

REACTIONS (2)
  - HYPERTENSION [None]
  - MALIGNANT HYPERTENSION [None]
